FAERS Safety Report 15350101 (Version 1)
Quarter: 2018Q3

REPORT INFORMATION
  Report Type: Spontaneous
  Country: US (occurrence: US)
  Receive Date: 20180904
  Receipt Date: 20180904
  Transmission Date: 20181010
  Serious: Yes (Other)
  Sender: FDA-Public Use
  Company Number: US-B.I. PHARMACEUTICALS,INC./RIDGEFIELD-2018-BI-043432

PATIENT
  Age: 69 Year
  Sex: Female

DRUGS (1)
  1. TRADJENTA [Suspect]
     Active Substance: LINAGLIPTIN
     Indication: DIABETES MELLITUS
     Dosage: ADMINISTRATION CORRECT? NR(NOT REPORTED) ACTION(S) TAKEN : NOT REPORTED
     Route: 048
     Dates: start: 2012

REACTIONS (14)
  - Arthritis [Not Recovered/Not Resolved]
  - Macular fibrosis [Not Recovered/Not Resolved]
  - Vulvovaginal mycotic infection [Unknown]
  - Cataract [Recovered/Resolved]
  - Visual impairment [Not Recovered/Not Resolved]
  - Blindness [Unknown]
  - Glaucoma [Not Recovered/Not Resolved]
  - Urinary tract infection [Recovered/Resolved]
  - Nausea [Unknown]
  - Vertigo [Not Recovered/Not Resolved]
  - Vulvovaginal mycotic infection [Recovered/Resolved]
  - Macular degeneration [Not Recovered/Not Resolved]
  - Thirst [Unknown]
  - Vomiting [Unknown]

NARRATIVE: CASE EVENT DATE: 2014
